FAERS Safety Report 16325828 (Version 1)
Quarter: 2019Q2

REPORT INFORMATION
  Report Type: Spontaneous
  Country: US (occurrence: US)
  Receive Date: 20190516
  Receipt Date: 20190516
  Transmission Date: 20190711
  Serious: Yes (Life-Threatening, Hospitalization, Disabling)
  Sender: FDA-Public Use
  Company Number: None

PATIENT
  Age: 40 Year
  Sex: Female
  Weight: 54 kg

DRUGS (2)
  1. JUVEDERM [Suspect]
     Active Substance: HYALURONIC ACID
  2. KYBELLA [Suspect]
     Active Substance: DEOXYCHOLIC ACID
     Indication: FAT TISSUE INCREASED

REACTIONS (14)
  - Fall [None]
  - Musculoskeletal disorder [None]
  - Exposed bone in jaw [None]
  - Chest pain [None]
  - Dyspnoea [None]
  - Injection site necrosis [None]
  - Vasodilatation [None]
  - Cerebrovascular accident [None]
  - Dizziness [None]
  - Injection site cellulitis [None]
  - Skin exfoliation [None]
  - Transient ischaemic attack [None]
  - Head discomfort [None]
  - Therapeutic product effect increased [None]

NARRATIVE: CASE EVENT DATE: 20190329
